FAERS Safety Report 24748970 (Version 1)
Quarter: 2024Q4

REPORT INFORMATION
  Report Type: Spontaneous
  Country: US (occurrence: US)
  Receive Date: 20241218
  Receipt Date: 20241218
  Transmission Date: 20250115
  Serious: No
  Sender: FRESENIUS KABI
  Company Number: US-FreseniusKabi-FK202418726

PATIENT
  Age: 36 Year
  Sex: Female
  Weight: 74.84 kg

DRUGS (4)
  1. CHORIONIC GONADOTROPIN [Suspect]
     Active Substance: CHORIOGONADOTROPIN ALFA
     Indication: Oocyte harvest
     Dosage: FORM OF ADMINISTRATION: INJECTION?DOSAGE: 10,000 UNITS?INJECTION INTO LOWER ABDOMEN?SECOND CYCLE
     Dates: end: 20241207
  2. CHORIONIC GONADOTROPIN [Suspect]
     Active Substance: CHORIOGONADOTROPIN ALFA
     Indication: Ovulation induction
     Dosage: FORM OF ADMINISTRATION: INJECTION?10,000 UNITS?INJECTION INTO LOWER ABDOMEN.?FIRST CYCLE?SUCCESSFUL
     Dates: start: 202410
  3. OMEPRAZOLE [Concomitant]
     Active Substance: OMEPRAZOLE
     Indication: Dyspepsia
  4. SERTRALINE [Concomitant]
     Active Substance: SERTRALINE HYDROCHLORIDE
     Indication: Anxiety

REACTIONS (1)
  - Drug ineffective [Unknown]

NARRATIVE: CASE EVENT DATE: 20241209
